FAERS Safety Report 15011873 (Version 2)
Quarter: 2018Q2

REPORT INFORMATION
  Report Type: Spontaneous
  Country: FR (occurrence: FR)
  Receive Date: 20180614
  Receipt Date: 20180627
  Transmission Date: 20180711
  Serious: Yes (Death, Hospitalization)
  Sender: FDA-Public Use
  Company Number: PHHY2018FR020191

PATIENT
  Age: 73 Year
  Sex: Male
  Weight: 107 kg

DRUGS (4)
  1. PIPERACILLIN AND TAZOBACTAM [Concomitant]
     Active Substance: PIPERACILLIN SODIUM\TAZOBACTAM SODIUM
     Indication: PRODUCT USED FOR UNKNOWN INDICATION
     Route: 042
  2. VORICONAZOLE. [Concomitant]
     Active Substance: VORICONAZOLE
     Indication: PRODUCT USED FOR UNKNOWN INDICATION
     Route: 042
  3. VANCOMYCIN HYDROCHLORIDE. [Concomitant]
     Active Substance: VANCOMYCIN HYDROCHLORIDE
     Indication: PRODUCT USED FOR UNKNOWN INDICATION
     Route: 042
  4. ARGANOVA [Suspect]
     Active Substance: ARGATROBAN
     Indication: OFF LABEL USE
     Dosage: 144 MG, QD (1 IN 1 DAY)
     Route: 042
     Dates: start: 20180328, end: 20180401

REACTIONS (3)
  - Cerebral haemorrhage [Fatal]
  - Brain oedema [Fatal]
  - Cerebellar haematoma [Fatal]

NARRATIVE: CASE EVENT DATE: 20180401
